FAERS Safety Report 18106905 (Version 2)
Quarter: 2020Q3

REPORT INFORMATION
  Report Type: Spontaneous
  Country: US (occurrence: US)
  Receive Date: 20200803
  Receipt Date: 20200819
  Transmission Date: 20201103
  Serious: No
  Sender: FDA-Public Use
  Company Number: US-009507513-2007USA010781

PATIENT
  Age: 30 Year
  Sex: Female
  Weight: 71.66 kg

DRUGS (6)
  1. MENOPUR [Concomitant]
     Active Substance: FOLLITROPIN\LUTEINIZING HORMONE
     Dosage: UNK
  2. FOLLISTIM AQ [Suspect]
     Active Substance: FOLLITROPIN
  3. GANIRELIX ACETATE INJECTION [Suspect]
     Active Substance: GANIRELIX ACETATE
     Dosage: 0.25 MILLIGRAM IN AM
     Dates: start: 20200723, end: 20200728
  4. DESOGESTREL (+) ETHINYL ESTRADIOL [Concomitant]
     Active Substance: DESOGESTREL\ETHINYL ESTRADIOL
     Dosage: UNK
  5. FOLLISTIM AQ [Suspect]
     Active Substance: FOLLITROPIN
     Indication: INFERTILITY FEMALE
     Dosage: 375 UNITS, QD, STRENGTH:300 IU/0.36ML
     Route: 058
     Dates: start: 20200710
  6. LEUPROLIDE [Concomitant]
     Active Substance: LEUPROLIDE
     Dosage: UNK

REACTIONS (1)
  - Nausea [Recovered/Resolved]

NARRATIVE: CASE EVENT DATE: 20200723
